FAERS Safety Report 5758904-3 (Version None)
Quarter: 2008Q2

REPORT INFORMATION
  Report Type: 
  Country: None (occurrence: None)
  Receive Date: 20080604
  Receipt Date: 20080527
  Transmission Date: 20081010
  Serious: Yes (Hospitalization)
  Sender: FDA-Public Use
  Company Number: PHEH2008US04827

PATIENT
  Age: 89 Year
  Sex: Male

DRUGS (2)
  1. EXELON [Suspect]
     Indication: COGNITIVE DISORDER
     Route: 062
  2. ZYPREXA [Suspect]

REACTIONS (7)
  - CONVULSION [None]
  - DELIRIUM [None]
  - DEPRESSED LEVEL OF CONSCIOUSNESS [None]
  - GASTROINTESTINAL TUBE INSERTION [None]
  - NEUROLOGICAL SYMPTOM [None]
  - PALLIATIVE CARE [None]
  - UNEVALUABLE EVENT [None]
